FAERS Safety Report 10476111 (Version 1)
Quarter: 2014Q3

REPORT INFORMATION
  Report Type: Spontaneous
  Country: BR (occurrence: BR)
  Receive Date: 20140925
  Receipt Date: 20140925
  Transmission Date: 20150326
  Serious: Yes (Hospitalization, Other)
  Sender: FDA-Public Use
  Company Number: BR-PFIZER INC-2014261154

PATIENT
  Age: 53 Year
  Sex: Female
  Weight: 94 kg

DRUGS (9)
  1. LYRICA [Suspect]
     Active Substance: PREGABALIN
     Indication: SCIATICA
     Dosage: 75 MG (1 CAPSULE), 2X/DAY (EVERY 12 HOURS)
     Route: 048
     Dates: start: 201407, end: 2014
  2. TRAMAL [Concomitant]
     Active Substance: TRAMADOL
     Indication: CANCER PAIN
     Dosage: UNK
     Route: 048
     Dates: start: 201407
  3. TRAMAL [Concomitant]
     Active Substance: TRAMADOL
     Dosage: 1 TABLET, 4X/DAY (EVERY 6 HOURS)
     Dates: start: 2014
  4. LYRICA [Suspect]
     Active Substance: PREGABALIN
     Dosage: 75 MG, 2X/DAY (EVERY 12 HOURS)
     Dates: start: 2014
  5. DIPYRONE [Concomitant]
     Active Substance: DIPYRONE
     Dosage: UNK
     Dates: start: 201407
  6. CENTRUM [Concomitant]
     Active Substance: VITAMINS
  7. DIOVAN [Concomitant]
     Active Substance: VALSARTAN
     Dosage: UNK
     Dates: start: 2004
  8. TRAMAL [Concomitant]
     Active Substance: TRAMADOL
     Dosage: 1 TABLET, 3X/DAY (EVERY 8 HOURS)
     Dates: start: 2014
  9. LYRICA [Suspect]
     Active Substance: PREGABALIN
     Dosage: 75 MG (1 CAPSULE), 1X/DAY
     Route: 048
     Dates: start: 2014, end: 2014

REACTIONS (4)
  - Pain [Unknown]
  - Thrombosis [Unknown]
  - Anaemia [Unknown]
  - Blood disorder [Unknown]

NARRATIVE: CASE EVENT DATE: 2014
